FAERS Safety Report 6568838-2 (Version None)
Quarter: 2010Q1

REPORT INFORMATION
  Report Type: 
  Country: None (occurrence: None)
  Receive Date: 20100203
  Receipt Date: 20090622
  Transmission Date: 20100710
  Serious: No
  Sender: FDA-Public Use
  Company Number: US-ABBOTT-09P-163-0581272-00

PATIENT
  Sex: Male
  Weight: 89.438 kg

DRUGS (4)
  1. TRICOR [Suspect]
     Indication: DRUG USE FOR UNKNOWN INDICATION
     Dates: start: 20090101
  2. TRILIPIX [Suspect]
     Indication: DRUG USE FOR UNKNOWN INDICATION
  3. JANUVIA [Concomitant]
     Indication: DIABETES MELLITUS
     Dates: end: 20090201
  4. VITAMIN E [Concomitant]
     Indication: DRUG USE FOR UNKNOWN INDICATION

REACTIONS (1)
  - DRUG INEFFECTIVE [None]
